FAERS Safety Report 4988386-0 (Version None)
Quarter: 2006Q2

REPORT INFORMATION
  Report Type: 
  Country: None (occurrence: None)
  Receive Date: 20060502
  Receipt Date: 20060426
  Transmission Date: 20061013
  Serious: Yes (Other)
  Sender: FDA-Public Use
  Company Number: US-AVENTIS-200614475GDDC

PATIENT
  Age: 72 Year
  Sex: Female
  Weight: 87 kg

DRUGS (6)
  1. DOCETAXEL [Suspect]
     Indication: SQUAMOUS CELL CARCINOMA
     Route: 042
     Dates: start: 20060412, end: 20060412
  2. CISPLATIN [Suspect]
     Indication: SQUAMOUS CELL CARCINOMA
     Route: 042
     Dates: start: 20060412, end: 20060412
  3. CALCIUM GLUCONATE [Concomitant]
     Dosage: DOSE: UNK
  4. PROTONIX [Concomitant]
  5. LIPITOR [Concomitant]
  6. DIOVAN [Concomitant]

REACTIONS (1)
  - BLOOD CREATININE INCREASED [None]
